FAERS Safety Report 22141592 (Version 1)
Quarter: 2023Q1

REPORT INFORMATION
  Report Type: Spontaneous
  Country: NL (occurrence: NL)
  Receive Date: 20230327
  Receipt Date: 20230327
  Transmission Date: 20230418
  Serious: Yes (Other)
  Sender: FDA-Public Use
  Company Number: None

PATIENT
  Sex: Male
  Weight: 75 kg

DRUGS (2)
  1. OLANZAPINE [Suspect]
     Active Substance: OLANZAPINE
     Indication: Insomnia
     Dosage: 2.5 MILLIGRAM, QD,(1X PER DAY 1 PIECE)
     Route: 065
     Dates: start: 20220101
  2. MIRTAZAPINE [Concomitant]
     Active Substance: MIRTAZAPINE
     Dosage: 15 MILLIGRAM,TABLET
     Route: 065

REACTIONS (2)
  - Suicidal ideation [Not Recovered/Not Resolved]
  - Asthenia [Not Recovered/Not Resolved]
